FAERS Safety Report 11603508 (Version 1)
Quarter: 2015Q4

REPORT INFORMATION
  Report Type: Spontaneous
  Country: US (occurrence: US)
  Receive Date: 20151007
  Receipt Date: 20151007
  Transmission Date: 20160304
  Serious: Yes (Hospitalization)
  Sender: FDA-Public Use
  Company Number: US-BEH-2015054369

PATIENT
  Age: 6 Year
  Sex: Female

DRUGS (3)
  1. CORIFACT [Concomitant]
     Active Substance: FACTOR XIII CONCENTRATE (HUMAN)
  2. RIASTAP [Suspect]
     Active Substance: FIBRINOGEN HUMAN
     Indication: HYPOFIBRINOGENAEMIA
     Route: 042
     Dates: start: 20150417
  3. RIASTAP [Suspect]
     Active Substance: FIBRINOGEN HUMAN
     Indication: FACTOR XIII DEFICIENCY
     Route: 042
     Dates: start: 20150417

REACTIONS (4)
  - Urinary tract infection [Unknown]
  - Pain [Unknown]
  - Pyrexia [Unknown]
  - Constipation [Unknown]

NARRATIVE: CASE EVENT DATE: 20150916
